FAERS Safety Report 23633845 (Version 1)
Quarter: 2024Q1

REPORT INFORMATION
  Report Type: Spontaneous
  Country: CA (occurrence: CA)
  Receive Date: 20240314
  Receipt Date: 20240314
  Transmission Date: 20240410
  Serious: Yes (Other)
  Sender: FDA-Public Use
  Company Number: CA-FreseniusKabi-FK202404193

PATIENT
  Sex: Female
  Weight: 2 kg

DRUGS (1)
  1. ADALIMUMAB [Suspect]
     Active Substance: ADALIMUMAB\ISOPROPYL ALCOHOL
     Indication: Inflammatory bowel disease
     Route: 064

REACTIONS (7)
  - Erythema of eyelid [Recovering/Resolving]
  - Foetal exposure during pregnancy [Recovering/Resolving]
  - Psoriasis [Recovering/Resolving]
  - Rash pustular [Recovering/Resolving]
  - Seborrhoeic dermatitis [Recovering/Resolving]
  - Toxic skin eruption [Recovering/Resolving]
  - Xerosis [Recovering/Resolving]
